FAERS Safety Report 19158806 (Version 1)
Quarter: 2021Q2

REPORT INFORMATION
  Report Type: Spontaneous
  Country: GB (occurrence: GB)
  Receive Date: 20210420
  Receipt Date: 20210420
  Transmission Date: 20210717
  Serious: Yes (Life-Threatening, Hospitalization)
  Sender: FDA-Public Use
  Company Number: GB-ASTRAZENECA-2021A315903

PATIENT
  Age: 39 Year
  Sex: Female

DRUGS (8)
  1. ALOGLIPTIN. [Concomitant]
     Active Substance: ALOGLIPTIN
     Route: 065
  2. LEVOTHYROXINE. [Concomitant]
     Active Substance: LEVOTHYROXINE
     Route: 065
  3. RAMIPRIL. [Concomitant]
     Active Substance: RAMIPRIL
     Route: 065
  4. DESOGESTREL [Concomitant]
     Active Substance: DESOGESTREL
     Route: 065
  5. ASTRAZENECA COVID?19 VACCINE [Concomitant]
     Active Substance: AZD-1222
     Indication: COVID-19 IMMUNISATION
     Route: 065
  6. YALTORMIN SR [Concomitant]
     Route: 065
  7. DAPAGLIFLOZIN. [Suspect]
     Active Substance: DAPAGLIFLOZIN
     Indication: TYPE 2 DIABETES MELLITUS
     Dosage: 10
     Route: 048
     Dates: start: 20180903, end: 20210409
  8. ERYTHROMYCINE [Concomitant]
     Active Substance: ERYTHROMYCIN
     Route: 065

REACTIONS (3)
  - Abdominal tenderness [Unknown]
  - Euglycaemic diabetic ketoacidosis [Recovered/Resolved]
  - Vomiting [Unknown]

NARRATIVE: CASE EVENT DATE: 20210409
